FAERS Safety Report 24892985 (Version 1)
Quarter: 2025Q1

REPORT INFORMATION
  Report Type: Spontaneous
  Country: IT (occurrence: IT)
  Receive Date: 20250128
  Receipt Date: 20250128
  Transmission Date: 20250409
  Serious: Yes (Other)
  Sender: CELLTRION
  Company Number: None

PATIENT

DRUGS (2)
  1. VEGZELMA [Suspect]
     Active Substance: BEVACIZUMAB-ADCD
     Indication: Product used for unknown indication
     Dates: start: 20231123
  2. TECENTRIQ [Suspect]
     Active Substance: ATEZOLIZUMAB
     Indication: Product used for unknown indication
     Dates: start: 20231123

REACTIONS (2)
  - Adrenal insufficiency [Not Recovered/Not Resolved]
  - Blood thyroid stimulating hormone increased [Not Recovered/Not Resolved]

NARRATIVE: CASE EVENT DATE: 20240402
